FAERS Safety Report 8118862-3 (Version None)
Quarter: 2012Q1

REPORT INFORMATION
  Report Type: 
  Country: None (occurrence: None)
  Receive Date: 20120207
  Receipt Date: 20120201
  Transmission Date: 20120608
  Serious: Yes (Other)
  Sender: FDA-Public Use
  Company Number: US-ELI_LILLY_AND_COMPANY-US201202000767

PATIENT
  Sex: Female

DRUGS (2)
  1. ALIMTA [Suspect]
     Dosage: 700 DF, UNKNOWN
  2. CARBOPLATIN [Concomitant]
     Dosage: UNK, UNKNOWN

REACTIONS (1)
  - ANAPHYLACTOID REACTION [None]
